FAERS Safety Report 15666332 (Version 7)
Quarter: 2020Q3

REPORT INFORMATION
  Report Type: Spontaneous
  Country: US (occurrence: US)
  Receive Date: 20181128
  Receipt Date: 20200702
  Transmission Date: 20201102
  Serious: Yes (Hospitalization)
  Sender: FDA-Public Use
  Company Number: US-ACTELION-A-NJ2018-182655

PATIENT
  Sex: Female
  Weight: 97.51 kg

DRUGS (3)
  1. VELETRI [Suspect]
     Active Substance: EPOPROSTENOL
     Dosage: 27 NG/KG, PER MIN
     Route: 042
  2. VELETRI [Suspect]
     Active Substance: EPOPROSTENOL
     Indication: PULMONARY ARTERIAL HYPERTENSION
     Dosage: 34 NG/KG, PER MIN
     Route: 042
  3. VELETRI [Suspect]
     Active Substance: EPOPROSTENOL
     Dosage: 30 NG/KG, PER MIN
     Route: 042

REACTIONS (8)
  - Vomiting [Unknown]
  - Magnetic resonance imaging [Unknown]
  - Parenteral nutrition [Recovered/Resolved]
  - Liver disorder [Unknown]
  - Diarrhoea [Unknown]
  - Dehydration [Unknown]
  - Transfusion [Unknown]
  - Blood potassium increased [Unknown]
